FAERS Safety Report 17322709 (Version 2)
Quarter: 2021Q1

REPORT INFORMATION
  Report Type: Other
  Country: US (occurrence: US)
  Receive Date: 20200127
  Receipt Date: 20210125
  Transmission Date: 20210419
  Serious: No
  Sender: FDA-Public Use
  Company Number: US-ACORDA-ACO_161878_2019

PATIENT
  Sex: Female

DRUGS (1)
  1. AMPYRA [Suspect]
     Active Substance: DALFAMPRIDINE
     Indication: MULTIPLE SCLEROSIS
     Dosage: 10 MILLIGRAM, BID (Q 12 HOURS)
     Route: 048
     Dates: start: 20190919

REACTIONS (6)
  - Grip strength decreased [Unknown]
  - Fall [Unknown]
  - Depressed mood [Unknown]
  - Hypoaesthesia [Unknown]
  - Condition aggravated [Unknown]
  - Anxiety [Unknown]
